FAERS Safety Report 16920889 (Version 4)
Quarter: 2021Q2

REPORT INFORMATION
  Report Type: Spontaneous
  Country: IN (occurrence: IN)
  Receive Date: 20191015
  Receipt Date: 20210401
  Transmission Date: 20210716
  Serious: Yes (Death, Other)
  Sender: FDA-Public Use
  Company Number: IN-PFIZER INC-2019444389

PATIENT
  Age: 61 Year
  Sex: Female

DRUGS (1)
  1. PALBACE [Suspect]
     Active Substance: PALBOCICLIB
     Indication: BREAST CANCER METASTATIC
     Dosage: 125 MG, 1X/DAY
     Route: 048
     Dates: start: 20190827, end: 202007

REACTIONS (5)
  - Death [Fatal]
  - Vomiting [Recovered/Resolved]
  - Neoplasm progression [Unknown]
  - Diabetes mellitus [Unknown]
  - Constipation [Unknown]

NARRATIVE: CASE EVENT DATE: 202010
